FAERS Safety Report 17497280 (Version 1)
Quarter: 2020Q1

REPORT INFORMATION
  Report Type: Spontaneous
  Country: US (occurrence: US)
  Receive Date: 20200304
  Receipt Date: 20200304
  Transmission Date: 20200409
  Serious: Yes (Death, Hospitalization)
  Sender: FDA-Public Use
  Company Number: US-TEVA-2020-US-1193386

PATIENT
  Age: 67 Year
  Sex: Male

DRUGS (6)
  1. GLUCAGON. [Suspect]
     Active Substance: GLUCAGON
     Route: 065
  2. ATROPINE. [Suspect]
     Active Substance: ATROPINE
     Route: 065
  3. CALCIUM [Suspect]
     Active Substance: CALCIUM
     Route: 065
  4. DILTIAZEM. [Suspect]
     Active Substance: DILTIAZEM
     Dosage: THE MAN INTENTIONALLY INGESTED 27 DELAYED RELEASE TABLETS OF DILTIAZEM
     Route: 048
  5. ALCOHOL. [Suspect]
     Active Substance: ALCOHOL
     Dosage: THE MAN INTENTIONALLY INGESTED ETHANOL
     Route: 048
  6. FAT EMULSION NOS [Suspect]
     Active Substance: EGG PHOSPHOLIPIDS\SAFFLOWER OIL\SOYBEAN OIL
     Route: 042

REACTIONS (8)
  - Drug ineffective [Unknown]
  - Toxicity to various agents [Fatal]
  - Pupil fixed [Fatal]
  - Dizziness [Fatal]
  - Completed suicide [Fatal]
  - Cardiac arrest [Fatal]
  - Seizure [Fatal]
  - Intentional overdose [Unknown]
